FAERS Safety Report 6901773-6 (Version None)
Quarter: 2010Q3

REPORT INFORMATION
  Report Type: 
  Country: None (occurrence: None)
  Receive Date: 20100803
  Receipt Date: 20100727
  Transmission Date: 20110219
  Serious: Yes (Death, Life-Threatening, Hospitalization, Other)
  Sender: FDA-Public Use
  Company Number: JP-ELI_LILLY_AND_COMPANY-JP200911006370

PATIENT
  Sex: Male
  Weight: 61 kg

DRUGS (8)
  1. GEMZAR [Suspect]
     Indication: PANCREATIC CARCINOMA STAGE IV
     Dosage: 1000 MG, OTHER
     Route: 042
     Dates: start: 20091026, end: 20091026
  2. RABEPRAZOLE SODIUM [Concomitant]
     Dosage: 10 MG, DAILY (1/D)
     Route: 048
     Dates: start: 20091015
  3. BLOPRESS [Concomitant]
     Dosage: 8 MG, DAILY (1/D)
     Route: 048
     Dates: start: 20091015
  4. LOXONIN [Concomitant]
     Dosage: 60 MG, 3/D
     Route: 048
     Dates: start: 20091015
  5. MUCOSTA [Concomitant]
     Dosage: 100 MG, 3/D
     Route: 048
     Dates: start: 20091015
  6. GASMOTIN [Concomitant]
     Dosage: 5 MG, 3/D
     Route: 048
     Dates: start: 20091015
  7. OXYCONTIN [Concomitant]
     Dosage: 5 MG, 2/D
     Route: 048
     Dates: start: 20091015, end: 20091027
  8. DUROTEP [Concomitant]
     Dosage: 2.1 MG, UNK
     Route: 062
     Dates: start: 20091026

REACTIONS (14)
  - DEHYDRATION [None]
  - DIABETES MELLITUS [None]
  - DIARRHOEA [None]
  - DISSEMINATED INTRAVASCULAR COAGULATION [None]
  - FEBRILE NEUTROPENIA [None]
  - HEPATIC FUNCTION ABNORMAL [None]
  - HYPERKALAEMIA [None]
  - PANCREATIC CARCINOMA [None]
  - PYREXIA [None]
  - RECTAL PROLAPSE [None]
  - RENAL FAILURE ACUTE [None]
  - SEPSIS [None]
  - THROMBOCYTOPENIA [None]
  - UPPER GASTROINTESTINAL HAEMORRHAGE [None]
